FAERS Safety Report 7280339-5 (Version None)
Quarter: 2011Q1

REPORT INFORMATION
  Report Type: 
  Country: None (occurrence: None)
  Receive Date: 20110208
  Receipt Date: 20110126
  Transmission Date: 20110831
  Serious: Yes (Other)
  Sender: FDA-Public Use
  Company Number: US-ELI_LILLY_AND_COMPANY-US200912003356

PATIENT
  Sex: Female
  Weight: 56.236 kg

DRUGS (17)
  1. FORTEO [Suspect]
     Indication: OSTEOPOROSIS
     Dosage: 20 UG, DAILY (1/D)
     Route: 058
     Dates: start: 20091001
  2. LASIX [Concomitant]
     Dosage: 20 MG, DAILY (1/D)
     Route: 048
     Dates: start: 20100716
  3. CYANOCOBALAMIN [Concomitant]
  4. RANITIDINE [Concomitant]
     Dosage: 75 MG, 2/D
     Route: 048
     Dates: start: 20101217
  5. POTASSIUM CHLORIDE [Concomitant]
     Dosage: 10 MEQ, DAILY (1/D)
     Dates: start: 20090518
  6. MESALAMINE [Concomitant]
     Dosage: 800 MG, 3/D
     Route: 048
     Dates: start: 20090624
  7. FOLTX [Concomitant]
     Dosage: UNK, DAILY (1/D)
     Route: 048
     Dates: start: 20081009
  8. CARAFATE [Concomitant]
     Dosage: 1 G, 4/D
     Route: 048
     Dates: start: 20090121
  9. ZANTAC [Concomitant]
     Dosage: 300 MG, 2/D
     Route: 048
     Dates: start: 20101001
  10. PROMETHAZINE HCL [Concomitant]
     Indication: NAUSEA
     Dosage: 25 MG, AS NEEDED
     Route: 048
     Dates: start: 20101220
  11. DIFLUCAN [Concomitant]
     Dosage: 100 MG, DAILY (1/D)
     Route: 048
     Dates: start: 20081212
  12. VITAMIN D [Concomitant]
     Dosage: 2000 U, 2/D
     Route: 048
     Dates: start: 20100716
  13. RANITIDINE [Concomitant]
     Dosage: 300 MG, DAILY (1/D)
     Route: 048
     Dates: start: 20101217
  14. POTASSIUM CHLORIDE [Concomitant]
     Dosage: 20 MEQ, 2/D
     Route: 048
  15. MAGNESIUM [Concomitant]
     Dosage: 1000 MG, DAILY (1/D)
     Route: 048
     Dates: start: 20100120
  16. NEURO-B FORTE NEU [Concomitant]
     Dosage: UNK, OTHER
     Dates: start: 20080801
  17. PREVACID [Concomitant]
     Dosage: 30 MG, EACH MORNING
     Route: 048
     Dates: start: 20100920

REACTIONS (7)
  - WEIGHT INCREASED [None]
  - INJECTION SITE HAEMATOMA [None]
  - RECTAL HAEMORRHAGE [None]
  - IRRITABLE BOWEL SYNDROME [None]
  - INJECTION SITE HAEMORRHAGE [None]
  - CROHN'S DISEASE [None]
  - INJECTION SITE PAIN [None]
